FAERS Safety Report 4608657-7 (Version None)
Quarter: 2005Q1

REPORT INFORMATION
  Report Type: 
  Country: None (occurrence: None)
  Receive Date: 20050315
  Receipt Date: 20050303
  Transmission Date: 20050727
  Serious: Yes (Other)
  Sender: FDA-Public Use
  Company Number: GB-NOVOPROD-242675

PATIENT
  Age: 57 Year
  Sex: Male

DRUGS (4)
  1. HUMAN MIXTARD 30 HM(GE) [Suspect]
     Indication: ILL-DEFINED DISORDER
     Dosage: 56 IU, QD
     Route: 058
     Dates: start: 20041216, end: 20050222
  2. ASPIRIN [Concomitant]
     Dosage: 75 MG, QD
     Route: 048
  3. SIMVASTATIN [Concomitant]
     Dosage: 40 MG, QD
     Route: 048
  4. LISINOPRIL [Concomitant]
     Dosage: 20 MG, QD
     Route: 048

REACTIONS (1)
  - LIPODYSTROPHY ACQUIRED [None]
